FAERS Safety Report 4816610-3 (Version None)
Quarter: 2005Q4

REPORT INFORMATION
  Report Type: 
  Country: None (occurrence: None)
  Receive Date: 20051028
  Receipt Date: 20051011
  Transmission Date: 20060501
  Serious: Yes (Death)
  Sender: FDA-Public Use
  Company Number: 2005S1010024

PATIENT
  Age: 42 Year
  Sex: Male

DRUGS (3)
  1. CLOZAPINE [Suspect]
     Indication: SCHIZOPHRENIA
     Dosage: 50 MG; QAM; ORAL
     Route: 048
     Dates: start: 20000906, end: 20051001
  2. CLOZAPINE [Suspect]
     Indication: SCHIZOPHRENIA
     Dosage: 700 MG; QD; ORAL
     Route: 048
     Dates: start: 20000906, end: 20051001
  3. ... [Suspect]

REACTIONS (1)
  - DEATH [None]
